FAERS Safety Report 8925409 (Version 1)
Quarter: 2012Q4

REPORT INFORMATION
  Report Type: Spontaneous
  Country: US (occurrence: None)
  Receive Date: 20121126
  Receipt Date: 20121126
  Transmission Date: 20130627
  Serious: Yes (Life-Threatening)
  Sender: FDA-Public Use
  Company Number: None

PATIENT
  Age: 50 Year
  Sex: Female
  Weight: 45.36 kg

DRUGS (6)
  1. EXALGO [Suspect]
     Indication: FACIAL NEURALGIA
     Route: 048
     Dates: end: 2012
  2. EXALGO [Suspect]
     Indication: INJURY
     Route: 048
     Dates: end: 2012
  3. EXALGO [Suspect]
     Indication: INFECTION
     Route: 048
     Dates: end: 2012
  4. EXALGO [Suspect]
     Indication: FACIAL NEURALGIA
     Route: 048
     Dates: end: 2011
  5. EXALGO [Suspect]
     Indication: INJURY
     Route: 048
     Dates: end: 2011
  6. EXALGO [Suspect]
     Indication: INFECTION
     Route: 048
     Dates: end: 2011

REACTIONS (2)
  - Depression suicidal [None]
  - Thinking abnormal [None]
